FAERS Safety Report 8313606-4 (Version None)
Quarter: 2012Q2

REPORT INFORMATION
  Report Type: 
  Country: None (occurrence: None)
  Receive Date: 20120426
  Receipt Date: 20120418
  Transmission Date: 20120825
  Serious: Yes (Other)
  Sender: FDA-Public Use
  Company Number: KR-ABBOTT-12P-090-0924202-00

PATIENT
  Age: 43 Year
  Sex: Male
  Weight: 77 kg

DRUGS (1)
  1. KALETRA [Suspect]
     Indication: HIV INFECTION
     Dosage: 4 TABLETS (2 IN 1 DAY)
     Dates: start: 20100709

REACTIONS (2)
  - HYPERTRIGLYCERIDAEMIA [None]
  - CIRRHOSIS ALCOHOLIC [None]
